FAERS Safety Report 5627978-2 (Version None)
Quarter: 2008Q1

REPORT INFORMATION
  Report Type: 
  Country: None (occurrence: None)
  Receive Date: 20080215
  Receipt Date: 20080205
  Transmission Date: 20080703
  Serious: Yes (Other)
  Sender: FDA-Public Use
  Company Number: US-ELI_LILLY_AND_COMPANY-US200802001256

PATIENT
  Sex: Male

DRUGS (1)
  1. HUMALOG [Suspect]

REACTIONS (4)
  - BLOOD GLUCOSE INCREASED [None]
  - BRAIN INJURY [None]
  - FALL [None]
  - VISUAL ACUITY REDUCED [None]
